FAERS Safety Report 8554661-6 (Version None)
Quarter: 2012Q3

REPORT INFORMATION
  Report Type: 
  Country: None (occurrence: None)
  Receive Date: 20120731
  Receipt Date: 20120726
  Transmission Date: 20120928
  Serious: No
  Sender: FDA-Public Use
  Company Number: US-TEVA-350725USA

PATIENT
  Age: 22 Year
  Sex: Male

DRUGS (2)
  1. NUVIGIL [Suspect]
     Route: 048
  2. ZYREM [Suspect]

REACTIONS (5)
  - RAYNAUD'S PHENOMENON [None]
  - CYANOSIS [None]
  - DYSPHORIA [None]
  - PARAESTHESIA [None]
  - ERYTHEMA [None]
